FAERS Safety Report 11445481 (Version 1)
Quarter: 2015Q3

REPORT INFORMATION
  Report Type: Spontaneous
  Country: US (occurrence: None)
  Receive Date: 20150901
  Receipt Date: 20150901
  Transmission Date: 20151125
  Serious: No
  Sender: FDA-Public Use
  Company Number: None

PATIENT
  Age: 44 Day
  Sex: Female
  Weight: 73.48 kg

DRUGS (6)
  1. ACIDOPHILUS [Concomitant]
     Active Substance: LACTOBACILLUS ACIDOPHILUS
  2. CALCIUM [Concomitant]
     Active Substance: CALCIUM
  3. MIDOL [Concomitant]
     Active Substance: IBUPROFEN
  4. TACLONEX [Suspect]
     Active Substance: BETAMETHASONE DIPROPIONATE\CALCIPOTRIENE\CALCIPOTRIENE HYDRATE
     Indication: PSORIASIS
     Dosage: TOPICAL AS NEEDED APPLIED TO A SURFACE, USUALLY THE SKIN
     Route: 061
     Dates: start: 20150821, end: 20150824
  5. DAILY VITAMIN [Concomitant]
     Active Substance: VITAMINS
  6. SUPER B [Concomitant]

REACTIONS (3)
  - Pruritus [None]
  - Psoriasis [None]
  - Skin exfoliation [None]

NARRATIVE: CASE EVENT DATE: 20150821
